FAERS Safety Report 10006768 (Version 3)
Quarter: 2015Q3

REPORT INFORMATION
  Report Type: Spontaneous
  Country: US (occurrence: US)
  Receive Date: 20140313
  Receipt Date: 20150812
  Transmission Date: 20151125
  Serious: Yes (Hospitalization)
  Sender: FDA-Public Use
  Company Number: US-GILEAD-2012-0063467

PATIENT
  Age: 83 Year
  Sex: Female

DRUGS (13)
  1. GLIMEPIRIDE. [Concomitant]
     Active Substance: GLIMEPIRIDE
  2. TRAZODONE [Concomitant]
     Active Substance: TRAZODONE HYDROCHLORIDE
  3. WARFARIN [Concomitant]
     Active Substance: WARFARIN
  4. PREDNISONE. [Concomitant]
     Active Substance: PREDNISONE
  5. CRESTOR [Concomitant]
     Active Substance: ROSUVASTATIN CALCIUM
  6. HUMALOG [Concomitant]
     Active Substance: INSULIN LISPRO
  7. LEVOXYL [Concomitant]
     Active Substance: LEVOTHYROXINE SODIUM
  8. NEXIUM [Concomitant]
     Active Substance: ESOMEPRAZOLE MAGNESIUM
  9. COREG [Concomitant]
     Active Substance: CARVEDILOL
  10. LETAIRIS [Suspect]
     Active Substance: AMBRISENTAN
     Indication: SCLERODERMA
  11. LETAIRIS [Suspect]
     Active Substance: AMBRISENTAN
     Indication: PULMONARY HYPERTENSION
     Dosage: 5 MG, QD
     Route: 048
     Dates: start: 20120924, end: 20121003
  12. TORSEMIDE. [Concomitant]
     Active Substance: TORSEMIDE
  13. ACTOS [Concomitant]
     Active Substance: PIOGLITAZONE HYDROCHLORIDE

REACTIONS (2)
  - Fluid retention [Unknown]
  - Cardiac failure [Unknown]

NARRATIVE: CASE EVENT DATE: 20121003
